FAERS Safety Report 8268845-8 (Version None)
Quarter: 2012Q2

REPORT INFORMATION
  Report Type: 
  Country: None (occurrence: None)
  Receive Date: 20120409
  Receipt Date: 20120409
  Transmission Date: 20120825
  Serious: No
  Sender: FDA-Public Use
  Company Number: None

PATIENT
  Age: 65 Year
  Sex: Male
  Weight: 113.39 kg

DRUGS (3)
  1. ALVESCO [Concomitant]
  2. ALVESCO [Suspect]
     Indication: DYSPNOEA
     Dosage: 2 PUFFS
     Route: 048
     Dates: start: 20120323, end: 20120405
  3. ALVESCO [Suspect]
     Indication: COUGH
     Dosage: 2 PUFFS
     Route: 048
     Dates: start: 20120323, end: 20120405

REACTIONS (1)
  - HEADACHE [None]
